FAERS Safety Report 5479349-X (Version None)
Quarter: 2007Q4

REPORT INFORMATION
  Report Type: 
  Country: None (occurrence: None)
  Receive Date: 20071008
  Receipt Date: 20070924
  Transmission Date: 20080405
  Serious: Yes (Other)
  Sender: FDA-Public Use
  Company Number: AT-ELI_LILLY_AND_COMPANY-US_030997501

PATIENT
  Age: 24 Year
  Sex: Male

DRUGS (2)
  1. OLANZAPINE [Suspect]
     Indication: SCHIZOPHRENIA
     Dosage: 10 MG, UNKNOWN
     Route: 048
  2. FLUPENTIXOL [Concomitant]
     Dosage: UNK, UNKNOWN

REACTIONS (3)
  - HEPATIC STEATOSIS [None]
  - HYPERLIPIDAEMIA [None]
  - WEIGHT INCREASED [None]
